FAERS Safety Report 18473199 (Version 3)
Quarter: 2021Q1

REPORT INFORMATION
  Report Type: Spontaneous
  Country: CA (occurrence: CA)
  Receive Date: 20201106
  Receipt Date: 20210330
  Transmission Date: 20210419
  Serious: Yes (Hospitalization, Other)
  Sender: FDA-Public Use
  Company Number: CA-JNJFOC-20201051959

PATIENT
  Age: 30 Year
  Sex: Male

DRUGS (6)
  1. MESALAMINE. [Concomitant]
     Active Substance: MESALAMINE
     Route: 065
  2. PREDNISONE. [Concomitant]
     Active Substance: PREDNISONE
     Route: 065
  3. REMICADE [Suspect]
     Active Substance: INFLIXIMAB
     Indication: COLITIS ULCERATIVE
     Route: 042
  4. MEZAVANT [Concomitant]
     Active Substance: MESALAMINE
     Route: 048
  5. REMICADE [Suspect]
     Active Substance: INFLIXIMAB
     Route: 042
  6. XELJANZ [Concomitant]
     Active Substance: TOFACITINIB CITRATE
     Indication: COLITIS ULCERATIVE
     Route: 048

REACTIONS (11)
  - Abdominal pain [Not Recovered/Not Resolved]
  - Condition aggravated [Not Recovered/Not Resolved]
  - Intentional product use issue [Not Recovered/Not Resolved]
  - Therapeutic product effect delayed [Not Recovered/Not Resolved]
  - Acne [Not Recovered/Not Resolved]
  - Body temperature increased [Not Recovered/Not Resolved]
  - Diarrhoea [Not Recovered/Not Resolved]
  - Off label use [Not Recovered/Not Resolved]
  - Dehydration [Not Recovered/Not Resolved]
  - Treatment failure [Not Recovered/Not Resolved]
  - Incorrect dose administered [Not Recovered/Not Resolved]
